FAERS Safety Report 4937673-0 (Version None)
Quarter: 2006Q1

REPORT INFORMATION
  Report Type: 
  Country: None (occurrence: None)
  Receive Date: 20060309
  Receipt Date: 20050414
  Transmission Date: 20060701
  Serious: Yes (Hospitalization, Disabling)
  Sender: FDA-Public Use
  Company Number: US-MERCK-0504USA03111

PATIENT
  Age: 63 Year
  Sex: Female
  Weight: 68 kg

DRUGS (3)
  1. VIOXX [Suspect]
     Indication: OSTEOARTHRITIS
     Route: 048
     Dates: start: 20040427, end: 20040823
  2. VIOXX [Suspect]
     Route: 048
     Dates: start: 20040427, end: 20040823
  3. TYLENOL (CAPLET) [Concomitant]
     Route: 065

REACTIONS (19)
  - CEREBRAL HAEMATOMA [None]
  - CEREBRAL HAEMORRHAGE [None]
  - ESCHERICHIA URINARY TRACT INFECTION [None]
  - FALL [None]
  - GINGIVAL INFECTION [None]
  - HYPERNATRAEMIA [None]
  - HYPONATRAEMIA [None]
  - INAPPROPRIATE ANTIDIURETIC HORMONE SECRETION [None]
  - LIVER FUNCTION TEST ABNORMAL [None]
  - LOBAR PNEUMONIA [None]
  - MENTAL STATUS CHANGES [None]
  - MICROCYTIC ANAEMIA [None]
  - ORAL INTAKE REDUCED [None]
  - PYREXIA [None]
  - SEPTIC PHLEBITIS [None]
  - STAPHYLOCOCCAL INFECTION [None]
  - TOOTH INFECTION [None]
  - URINARY TRACT INFECTION [None]
  - URINARY TRACT INFECTION ENTEROCOCCAL [None]
